FAERS Safety Report 21033312 (Version 5)
Quarter: 2023Q1

REPORT INFORMATION
  Report Type: Report from Study
  Country: IE (occurrence: None)
  Receive Date: 20220701
  Receipt Date: 20230125
  Transmission Date: 20230417
  Serious: Yes (Hospitalization)
  Sender: FDA-Public Use
  Company Number: IE-Merck Healthcare KGaA-9332661

PATIENT
  Age: 49 Year
  Sex: Male

DRUGS (11)
  1. MAVENCLAD [Suspect]
     Active Substance: CLADRIBINE
     Indication: Relapsing-remitting multiple sclerosis
     Dosage: YEAR ONE WEEK ONE THERAPY
     Route: 048
     Dates: start: 20190708
  2. MAVENCLAD [Suspect]
     Active Substance: CLADRIBINE
     Dosage: YEAR ONE WEEK FIVE THERAPY
     Route: 048
     Dates: start: 20190805
  3. MAVENCLAD [Suspect]
     Active Substance: CLADRIBINE
     Dosage: YEAR TWO WEEK ONE THERAPY
     Route: 048
     Dates: start: 20210621
  4. MAVENCLAD [Suspect]
     Active Substance: CLADRIBINE
     Dosage: YEAR TWO WEEK FIVE THERAPY
     Route: 048
     Dates: start: 20210720
  5. TAMSULOSIN [Concomitant]
     Active Substance: TAMSULOSIN
     Indication: Product used for unknown indication
  6. CRESTOR [Concomitant]
     Active Substance: ROSUVASTATIN CALCIUM
     Indication: Product used for unknown indication
  7. NEXAZOLE [LETROZOLE] [Concomitant]
     Indication: Product used for unknown indication
  8. BACLOFEN [Concomitant]
     Active Substance: BACLOFEN
     Indication: Product used for unknown indication
  9. FOLIC ACID [Concomitant]
     Active Substance: FOLIC ACID
     Indication: Product used for unknown indication
  10. MIRABEGRON [Concomitant]
     Active Substance: MIRABEGRON
     Indication: Product used for unknown indication
  11. ERGOCALCIFEROL [Concomitant]
     Active Substance: ERGOCALCIFEROL
     Indication: Product used for unknown indication
     Dosage: 2000 UNIT

REACTIONS (11)
  - Urinary retention [Unknown]
  - Urosepsis [Recovered/Resolved]
  - Escherichia sepsis [Recovered/Resolved]
  - Constipation [Not Recovered/Not Resolved]
  - Fatigue [Unknown]
  - Grip strength decreased [Unknown]
  - Headache [Unknown]
  - Gait disturbance [Unknown]
  - Balance disorder [Unknown]
  - Insomnia [Unknown]
  - Pain in extremity [Unknown]

NARRATIVE: CASE EVENT DATE: 20220604
